FAERS Safety Report 5606551-6 (Version None)
Quarter: 2008Q1

REPORT INFORMATION
  Report Type: 
  Country: None (occurrence: None)
  Receive Date: 20080129
  Receipt Date: 20080116
  Transmission Date: 20080703
  Serious: Yes (Hospitalization, Other)
  Sender: FDA-Public Use
  Company Number: JP-ELI_LILLY_AND_COMPANY-JP200712002586

PATIENT
  Sex: Male
  Weight: 60 kg

DRUGS (6)
  1. GEMZAR [Suspect]
     Indication: PANCREATIC CARCINOMA STAGE IV
     Dosage: 1600 MG, OTHER
     Route: 042
     Dates: start: 20060228, end: 20060507
  2. GEMZAR [Suspect]
     Dosage: 180 MG, WEEKLY (1/W)
     Route: 042
     Dates: start: 20060508, end: 20060613
  3. GEMZAR [Suspect]
     Dosage: 1600 MG, OTHER
     Route: 042
     Dates: start: 20060614, end: 20071004
  4. DECADRON /NET/ [Concomitant]
     Indication: PROPHYLAXIS
     Dosage: 8 MG, UNK
     Route: 042
     Dates: start: 20060228, end: 20071004
  5. KYTRIL [Concomitant]
     Indication: PROPHYLAXIS
     Dosage: 3 MG, UNK
     Route: 042
     Dates: start: 20060228, end: 20060720
  6. NEUTROGIN [Concomitant]
     Indication: PROPHYLAXIS
     Dosage: 100 UG, UNK
     Route: 058
     Dates: start: 20070202, end: 20070420

REACTIONS (4)
  - HAEMOGLOBIN DECREASED [None]
  - MALNUTRITION [None]
  - RENAL DISORDER [None]
  - WHITE BLOOD CELL COUNT DECREASED [None]
